FAERS Safety Report 9333327 (Version 3)
Quarter: 2016Q3

REPORT INFORMATION
  Report Type: Spontaneous
  Country: BR (occurrence: BR)
  Receive Date: 20130606
  Receipt Date: 20160930
  Transmission Date: 20161109
  Serious: Yes (Death, Hospitalization)
  Sender: FDA-Public Use
  Company Number: BR-JNJFOC-20130516527

PATIENT
  Age: 2 Year
  Sex: Male
  Weight: 14 kg

DRUGS (1)
  1. TYLENOL [Suspect]
     Active Substance: ACETAMINOPHEN
     Indication: PYREXIA
     Route: 048
     Dates: start: 20110909, end: 20110909

REACTIONS (7)
  - Tachycardia [Fatal]
  - Agitation [Fatal]
  - Thrombocytopenia [Fatal]
  - Hypovolaemia [Fatal]
  - Acute kidney injury [Fatal]
  - Septic shock [Fatal]
  - Adverse event [Fatal]

NARRATIVE: CASE EVENT DATE: 20110909
